FAERS Safety Report 9229033 (Version 2)
Quarter: 2013Q2

REPORT INFORMATION
  Report Type: Spontaneous
  Country: CA (occurrence: CA)
  Receive Date: 20130412
  Receipt Date: 20130423
  Transmission Date: 20140414
  Serious: Yes (Other)
  Sender: FDA-Public Use
  Company Number: CA-WATSON-2013-06309

PATIENT
  Sex: 0

DRUGS (3)
  1. GELNIQUE-CANADA (WATSON LABORATORIES) [Suspect]
     Indication: INCONTINENCE
     Dosage: 1G UNIT DOSE OF 100MG/G, ONCE DAILY
     Route: 062
     Dates: start: 20130325, end: 20130325
  2. GELNIQUE-CANADA (WATSON LABORATORIES) [Suspect]
     Indication: POLLAKIURIA
  3. GELNIQUE-CANADA (WATSON LABORATORIES) [Suspect]
     Indication: MICTURITION URGENCY

REACTIONS (3)
  - Nightmare [Recovered/Resolved]
  - Hallucination [Recovered/Resolved]
  - Sleep disorder [Recovered/Resolved]
